FAERS Safety Report 25330813 (Version 1)
Quarter: 2025Q2

REPORT INFORMATION
  Report Type: Spontaneous
  Country: US (occurrence: None)
  Receive Date: 20250516
  Receipt Date: 20250516
  Transmission Date: 20250717
  Serious: Yes (Hospitalization)
  Sender: FDA-CTU
  Company Number: None

PATIENT
  Age: 57 Year
  Sex: Female

DRUGS (12)
  1. TACROLIMUS [Suspect]
     Active Substance: TACROLIMUS
     Indication: Lung transplant
     Dates: start: 20250327
  2. MYCOPHENOLIC ACID [Suspect]
     Active Substance: MYCOPHENOLIC ACID
     Indication: Lung transplant
     Dosage: FREQUENCY : TWICE A DAY;?
     Route: 048
     Dates: start: 20241005
  3. FLUCONAZOLE [Concomitant]
     Active Substance: FLUCONAZOLE
  4. PROCHLORPERAZINE [Concomitant]
     Active Substance: PROCHLORPERAZINE
  5. PRAVASTATIN [Concomitant]
     Active Substance: PRAVASTATIN
  6. DOXYCYCLINE [Concomitant]
     Active Substance: DOXYCYCLINE
  7. CEFPODOXIME [Concomitant]
     Active Substance: CEFPODOXIME
  8. CALCIUM [Concomitant]
     Active Substance: CALCIUM
  9. MAGNESIUM OXIDE [Concomitant]
     Active Substance: MAGNESIUM OXIDE
  10. ASPIRIN [Concomitant]
     Active Substance: ASPIRIN
  11. RIZATRIPTAN [Concomitant]
     Active Substance: RIZATRIPTAN
  12. CYANOCOBALAMIN [Concomitant]
     Active Substance: CYANOCOBALAMIN

REACTIONS (2)
  - Pneumonia [None]
  - Transplant [None]

NARRATIVE: CASE EVENT DATE: 20250507
